FAERS Safety Report 15036299 (Version 2)
Quarter: 2018Q2

REPORT INFORMATION
  Report Type: Spontaneous
  Country: US (occurrence: US)
  Receive Date: 20180620
  Receipt Date: 20180622
  Transmission Date: 20180711
  Serious: No
  Sender: FDA-Public Use
  Company Number: US-BIOGEN-2018BI00595596

PATIENT
  Age: 7 Year
  Sex: Female

DRUGS (1)
  1. SPINRAZA [Suspect]
     Active Substance: NUSINERSEN
     Indication: SPINAL MUSCULAR ATROPHY
     Route: 065

REACTIONS (6)
  - Migraine [Unknown]
  - Heart rate increased [Unknown]
  - Poor peripheral circulation [Unknown]
  - Abdominal pain [Unknown]
  - Petechiae [Unknown]
  - Post lumbar puncture syndrome [Not Recovered/Not Resolved]

NARRATIVE: CASE EVENT DATE: 20180608
